FAERS Safety Report 22371747 (Version 1)
Quarter: 2023Q2

REPORT INFORMATION
  Report Type: Spontaneous
  Country: US (occurrence: US)
  Receive Date: 20230526
  Receipt Date: 20230526
  Transmission Date: 20230722
  Serious: Yes (Hospitalization, Disabling, Other)
  Sender: FDA-Public Use
  Company Number: US-SA-SAC20230525000605

PATIENT
  Sex: Female

DRUGS (23)
  1. DUPIXENT [Suspect]
     Active Substance: DUPILUMAB
     Indication: Asthma
     Dosage: 300 MG, QOW
     Route: 058
     Dates: start: 20190920
  2. ALBUTEROL [Concomitant]
     Active Substance: ALBUTEROL
     Dosage: UNK (ALBUTEROL NEB 0.63MG/3)
  3. ASPIRIN [Concomitant]
     Active Substance: ASPIRIN
  4. BREO ELLIPTA [Concomitant]
     Active Substance: FLUTICASONE FUROATE\VILANTEROL TRIFENATATE
     Dosage: BREO ELLIPTA INH 200-25
  5. CALCIUM [Concomitant]
     Active Substance: CALCIUM
  6. CANDESARTAN [Concomitant]
     Active Substance: CANDESARTAN
  7. ELIQUIS [Concomitant]
     Active Substance: APIXABAN
  8. GABAPENTIN [Concomitant]
     Active Substance: GABAPENTIN
  9. GENTAMICIN [Concomitant]
     Active Substance: GENTAMICIN
     Dosage: UNK
  10. IRON [Concomitant]
     Active Substance: IRON
  11. MELATONIN [Concomitant]
     Active Substance: MELATONIN
     Dosage: MELATONIN SUB 10MG
  12. MUCINEX [Concomitant]
     Active Substance: GUAIFENESIN
  13. OMEPRAZOLE [Concomitant]
     Active Substance: OMEPRAZOLE
  14. PREDNISONE [Concomitant]
     Active Substance: PREDNISONE
  15. PROAIR HFA [Concomitant]
     Active Substance: ALBUTEROL SULFATE
  16. TRAMADOL [Concomitant]
     Active Substance: TRAMADOL
  17. VITAMIN D NOS [Concomitant]
     Active Substance: VITAMIN D NOS
  18. ZANTAC [Concomitant]
     Active Substance: RANITIDINE HYDROCHLORIDE
  19. ZOFRAN [Concomitant]
     Active Substance: ONDANSETRON HYDROCHLORIDE
  20. VITAMIN B12 [Concomitant]
     Active Substance: CYANOCOBALAMIN
  21. COLISTIMETHATE [Concomitant]
     Active Substance: COLISTIMETHATE SODIUM
  22. DOXYCYCLINE HYDROCHLORIDE [Concomitant]
     Active Substance: DOXYCYCLINE HYDROCHLORIDE
  23. COENZYME Q10 [Concomitant]
     Active Substance: DIETARY SUPPLEMENT\UBIDECARENONE

REACTIONS (5)
  - Pneumonia [Unknown]
  - COVID-19 [Unknown]
  - Loss of personal independence in daily activities [Unknown]
  - Asthma [Unknown]
  - Drug ineffective [Unknown]
